FAERS Safety Report 10606267 (Version 1)
Quarter: 2014Q4

REPORT INFORMATION
  Report Type: Spontaneous
  Country: GB (occurrence: None)
  Receive Date: 20141121
  Receipt Date: 20141121
  Transmission Date: 20150529
  Serious: Yes (Hospitalization, Other)
  Sender: FDA-Public Use
  Company Number: FKF201405350

PATIENT
  Age: 73 Year
  Sex: Male

DRUGS (7)
  1. CANDESARTAN (CANDESARTAN) [Suspect]
     Active Substance: CANDESARTAN
     Indication: LEFT VENTRICULAR HYPERTROPHY
     Route: 048
     Dates: end: 20110625
  2. PRAVASTATIN [Concomitant]
     Active Substance: PRAVASTATIN\PRAVASTATIN SODIUM
  3. FUROSEMIDE. [Suspect]
     Active Substance: FUROSEMIDE
     Indication: LEFT VENTRICULAR HYPERTROPHY
     Route: 048
     Dates: end: 20110625
  4. ASPIRIN (ACETYLSALICYLIC ACID) [Concomitant]
     Active Substance: ASPIRIN
  5. SPIRONOLACTONE (SPIRONOLACTONE) [Suspect]
     Active Substance: SPIRONOLACTONE
     Indication: LEFT VENTRICULAR HYPERTROPHY
     Dates: end: 20110625
  6. BISOPROLOL [Concomitant]
     Active Substance: BISOPROLOL
  7. GLYCERYL TRINITRATE [Concomitant]
     Active Substance: NITROGLYCERIN

REACTIONS (5)
  - Rales [None]
  - Hypotension [None]
  - Acute kidney injury [None]
  - Hyperkalaemia [None]
  - Dyspnoea [None]
